FAERS Safety Report 6312741-X (Version None)
Quarter: 2009Q3

REPORT INFORMATION
  Report Type: 
  Country: None (occurrence: None)
  Receive Date: 20090818
  Receipt Date: 20090813
  Transmission Date: 20100115
  Serious: Yes (Death, Hospitalization)
  Sender: FDA-Public Use
  Company Number: BE-BRISTOL-MYERS SQUIBB COMPANY-14713325

PATIENT
  Age: 72 Year

DRUGS (4)
  1. CETUXIMAB [Suspect]
     Indication: COLON CANCER
     Dosage: MOST RECENT INF: 22MAY09 5MG/ML
     Route: 042
     Dates: start: 20090107, end: 20090611
  2. OXALIPLATIN [Suspect]
     Indication: COLON CANCER
     Dosage: MOST RECENT INF: 14MAY09
     Route: 042
     Dates: start: 20090107, end: 20090611
  3. FLUOROURACIL [Suspect]
     Indication: COLON CANCER
     Dosage: MOST RECENT INF: 14MAY09
     Route: 042
     Dates: start: 20090107, end: 20090611
  4. FOLINIC ACID [Suspect]
     Indication: COLON CANCER
     Dosage: LAST INF PRIOR TO EVENT 14-MAY-2009
     Route: 042
     Dates: start: 20090107, end: 20090611

REACTIONS (1)
  - PULMONARY FIBROSIS [None]
